FAERS Safety Report 4521060-3 (Version None)
Quarter: 2004Q4

REPORT INFORMATION
  Report Type: 
  Country: None (occurrence: None)
  Receive Date: 20041206
  Receipt Date: 20041124
  Transmission Date: 20050328
  Serious: Yes (Hospitalization)
  Sender: FDA-Public Use
  Company Number: STA-AE-04-MTX-594

PATIENT
  Age: 19 Year
  Sex: Female

DRUGS (14)
  1. METHOTREXATE [Suspect]
     Dosage: UNK
     Route: 065
  2. CAMPATH [Suspect]
     Indication: STEM CELL TRANSPLANT
     Dosage: UNK
     Route: 065
  3. CYCLOPHOSPHAMIDE [Suspect]
     Indication: STEM CELL TRANSPLANT
     Dosage: UNK
     Route: 065
  4. CYCLOSPORINE [Suspect]
     Dosage: 1 MG/KG TWICE DAILY, UNK
     Route: 065
  5. LEUCOVORIN CALCIUM [Concomitant]
  6. CEFTRIAXONE [Concomitant]
  7. METRONIDAZOLE [Concomitant]
  8. ALLOPURINOL [Concomitant]
  9. ACYCLOVIR [Concomitant]
  10. CIPROFLOXACIN [Concomitant]
  11. SULFAMETHOXAZOLE + TRIMETHOPRIM [Concomitant]
  12. COLISTIN SULFATE (COLISTIN SULFATE) [Concomitant]
  13. ITRACONAZOLE [Concomitant]
  14. AMPHOTERICIN B [Concomitant]

REACTIONS (11)
  - CANDIDA PNEUMONIA [None]
  - DERMATITIS EXFOLIATIVE [None]
  - ENTEROCOCCAL INFECTION [None]
  - ERYTHEMA [None]
  - FUNGAL INFECTION [None]
  - FUNGAL SEPSIS [None]
  - FUSARIUM INFECTION [None]
  - NEUTROPENIA [None]
  - OEDEMA PERIPHERAL [None]
  - PAIN IN EXTREMITY [None]
  - SKIN DESQUAMATION [None]
